FAERS Safety Report 18533842 (Version 1)
Quarter: 2020Q4

REPORT INFORMATION
  Report Type: Spontaneous
  Country: US (occurrence: US)
  Receive Date: 20201122
  Receipt Date: 20201122
  Transmission Date: 20210114
  Serious: Yes (Life-Threatening, Hospitalization, Disabling)
  Sender: FDA-Public Use
  Company Number: None

PATIENT
  Age: 53 Year
  Sex: Female
  Weight: 74.25 kg

DRUGS (21)
  1. ESTRODRIL [Concomitant]
  2. LYSINE [Concomitant]
     Active Substance: LYSINE
  3. LOSARTAN. [Concomitant]
     Active Substance: LOSARTAN
  4. XOLAIR [Concomitant]
     Active Substance: OMALIZUMAB
  5. EPIPEN [Concomitant]
     Active Substance: EPINEPHRINE
  6. CLARITIN [Concomitant]
     Active Substance: LORATADINE
  7. CIDEMINE [Concomitant]
  8. ALLERGY MEDS [Concomitant]
  9. ADDERALL [Concomitant]
     Active Substance: AMPHETAMINE ASPARTATE\AMPHETAMINE SULFATE\DEXTROAMPHETAMINE SACCHARATE\DEXTROAMPHETAMINE SULFATE
  10. BENADRYL [Concomitant]
     Active Substance: DIPHENHYDRAMINE HYDROCHLORIDE
  11. READI-CAT 2 [Suspect]
     Active Substance: BARIUM SULFATE
     Indication: INVESTIGATION
     Dosage: ?          QUANTITY:2 450 ML BOTTLES;?
     Route: 048
     Dates: start: 20200218, end: 20200218
  12. RESCUE INHALER [Concomitant]
     Active Substance: UNSPECIFIED INGREDIENT
  13. XYZAL [Concomitant]
     Active Substance: LEVOCETIRIZINE DIHYDROCHLORIDE
  14. DICYCLOMINE [Concomitant]
     Active Substance: DICYCLOMINE HYDROCHLORIDE
  15. CLOPIDOGREL [Concomitant]
     Active Substance: CLOPIDOGREL BISULFATE
  16. MUSCLE RELAXER [Concomitant]
     Active Substance: UNSPECIFIED INGREDIENT
  17. XOLAIR [Concomitant]
     Active Substance: OMALIZUMAB
  18. MAGNESIUM [Concomitant]
     Active Substance: MAGNESIUM
  19. HYDROCHLOROTHIAZIDE. [Concomitant]
     Active Substance: HYDROCHLOROTHIAZIDE
  20. VITAMIN D3 [Concomitant]
     Active Substance: CHOLECALCIFEROL
  21. LIVALO [Concomitant]
     Active Substance: PITAVASTATIN CALCIUM

REACTIONS (4)
  - Tremor [None]
  - Allergic reaction to excipient [None]
  - Anaphylactic reaction [None]
  - Chemical poisoning [None]

NARRATIVE: CASE EVENT DATE: 20200218
